FAERS Safety Report 7507310-X (Version None)
Quarter: 2011Q2

REPORT INFORMATION
  Report Type: 
  Country: None (occurrence: None)
  Receive Date: 20110526
  Receipt Date: 20110518
  Transmission Date: 20111010
  Serious: Yes (Hospitalization, Other)
  Sender: FDA-Public Use
  Company Number: DE-BAXTER-2011BH011277

PATIENT
  Sex: Male
  Weight: 66 kg

DRUGS (2)
  1. EXTRANEAL [Suspect]
     Indication: PERITONEAL DIALYSIS
     Route: 033
     Dates: end: 20110303
  2. PHYSIOSOL IN PLASTIC CONTAINER [Suspect]
     Indication: PERITONEAL DIALYSIS
     Route: 033
     Dates: end: 20110303

REACTIONS (10)
  - ULTRAFILTRATION FAILURE [None]
  - PLEURAL EFFUSION [None]
  - VOMITING [None]
  - REFLUX OESOPHAGITIS [None]
  - CONSTIPATION [None]
  - ATELECTASIS [None]
  - PERITONITIS BACTERIAL [None]
  - PNEUMONIA [None]
  - SCLEROSING ENCAPSULATING PERITONITIS [None]
  - ABDOMINAL PAIN [None]
